FAERS Safety Report 10550220 (Version 1)
Quarter: 2014Q4

REPORT INFORMATION
  Report Type: Other
  Country: GB (occurrence: GB)
  Receive Date: 20141028
  Receipt Date: 20141028
  Transmission Date: 20150529
  Serious: Yes (Other)
  Sender: FDA-Public Use
  Company Number: GB-MYLANLABS-2014M1007660

PATIENT

DRUGS (4)
  1. ALENDRONATE [Concomitant]
     Active Substance: ALENDRONATE SODIUM
     Dosage: UNK
  2. ZOLEDRONIC ACID [Suspect]
     Active Substance: ZOLEDRONIC ACID
     Indication: PROPHYLAXIS
     Dosage: 5 MG, UNK
     Route: 042
     Dates: start: 201312, end: 201407
  3. PREDNISOLONE. [Concomitant]
     Active Substance: PREDNISOLONE
     Dosage: UNK
  4. STRONTIUM RANELATE [Concomitant]
     Active Substance: STRONTIUM RANELATE
     Indication: ATYPICAL FRACTURE
     Dosage: UNK

REACTIONS (3)
  - Pain in extremity [Unknown]
  - Femur fracture [Unknown]
  - Muscular weakness [Unknown]
